FAERS Safety Report 13968650 (Version 6)
Quarter: 2018Q2

REPORT INFORMATION
  Report Type: Spontaneous
  Country: FR (occurrence: FR)
  Receive Date: 20170914
  Receipt Date: 20180425
  Transmission Date: 20180711
  Serious: Yes (Congenital Anomaly, Other)
  Sender: FDA-Public Use
  Company Number: FR-JNJFOC-20170910270

PATIENT
  Age: 1 Day
  Sex: Female
  Weight: 3.43 kg

DRUGS (6)
  1. SPECIAFOLDINE [Concomitant]
     Active Substance: FOLIC ACID
     Route: 064
  2. PREZISTA [Suspect]
     Active Substance: DARUNAVIR ETHANOLATE
     Indication: PROPHYLAXIS AGAINST HIV INFECTION
     Route: 064
     Dates: start: 20160610, end: 20170627
  3. TARDYFERON [Concomitant]
     Active Substance: FERROUS SULFATE
     Route: 064
  4. NORVIR [Suspect]
     Active Substance: RITONAVIR
     Indication: PROPHYLAXIS AGAINST HIV INFECTION
     Route: 064
     Dates: start: 20160610, end: 20170627
  5. TRUVADA [Suspect]
     Active Substance: EMTRICITABINE\TENOFOVIR DISOPROXIL FUMARATE
     Indication: PROPHYLAXIS AGAINST HIV INFECTION
     Dosage: DOSE: 200 MG/245 MG
     Route: 064
     Dates: start: 20160610, end: 20170103
  6. KIVEXA [Suspect]
     Active Substance: ABACAVIR SULFATE\LAMIVUDINE
     Indication: PROPHYLAXIS AGAINST HIV INFECTION
     Route: 064
     Dates: start: 20170103, end: 20170627

REACTIONS (2)
  - Foetal exposure during pregnancy [Recovered/Resolved]
  - Atrial septal defect [Recovering/Resolving]

NARRATIVE: CASE EVENT DATE: 20170628
